FAERS Safety Report 19973591 (Version 1)
Quarter: 2021Q4

REPORT INFORMATION
  Report Type: Spontaneous
  Country: US (occurrence: US)
  Receive Date: 20211020
  Receipt Date: 20211020
  Transmission Date: 20220303
  Serious: Yes (Hospitalization)
  Sender: FDA-Public Use
  Company Number: None

PATIENT
  Age: 84 Year
  Sex: Male

DRUGS (16)
  1. DEFERASIROX [Suspect]
     Active Substance: DEFERASIROX
     Indication: Poisoning
     Route: 048
     Dates: start: 20190511
  2. ALLOPURINOL [Concomitant]
     Active Substance: ALLOPURINOL
  3. ASPIRIN [Concomitant]
     Active Substance: ASPIRIN
  4. COLESEVELAM [Concomitant]
     Active Substance: COLESEVELAM
  5. EXJADE [Concomitant]
     Active Substance: DEFERASIROX
  6. JANUVIA [Concomitant]
     Active Substance: SITAGLIPTIN PHOSPHATE
  7. LEVOFLOXACIN [Concomitant]
     Active Substance: LEVOFLOXACIN
  8. LEVOTHYROXINE [Concomitant]
     Active Substance: LEVOTHYROXINE
  9. LIPITOR [Concomitant]
     Active Substance: ATORVASTATIN CALCIUM
  10. METOPROLOL TARTRATE [Concomitant]
     Active Substance: METOPROLOL TARTRATE
  11. PLAVIX [Concomitant]
     Active Substance: CLOPIDOGREL BISULFATE
  12. PREDNISONE [Concomitant]
     Active Substance: PREDNISONE
  13. PRESERVISION CAP [Concomitant]
  14. RENAL [Concomitant]
  15. TYLENOL [Concomitant]
     Active Substance: ACETAMINOPHEN
  16. VITAMIN D3 [Concomitant]
     Active Substance: CHOLECALCIFEROL

REACTIONS (5)
  - Localised infection [None]
  - Pharyngeal haemorrhage [None]
  - Epistaxis [None]
  - Nausea [None]
  - Product dose omission issue [None]

NARRATIVE: CASE EVENT DATE: 20211004
